FAERS Safety Report 9241621 (Version 1)
Quarter: 2013Q2

REPORT INFORMATION
  Report Type: Spontaneous
  Country: CA (occurrence: CA)
  Receive Date: 20130419
  Receipt Date: 20130419
  Transmission Date: 20140414
  Serious: Yes (Other)
  Sender: FDA-Public Use
  Company Number: CA-NOVOPROD-375220

PATIENT
  Age: 70 Year
  Sex: Male

DRUGS (13)
  1. NOVORAPID PENFILL [Suspect]
     Indication: PRODUCT USED FOR UNKNOWN INDICATION
     Dosage: 65 U, QD
     Route: 058
  2. APO ATORVASTATIN [Concomitant]
  3. APO METFORMIN [Concomitant]
     Dosage: 500 MG TAB
  4. ELTROXIN [Concomitant]
  5. ENTROPHEN [Concomitant]
  6. EZETROL [Concomitant]
  7. ISDN [Concomitant]
  8. LANTUS [Concomitant]
  9. LISINOPRIL                         /00894002/ [Concomitant]
  10. LORAZEPAM [Concomitant]
  11. METOPROLOL [Concomitant]
  12. PLAVIX [Concomitant]
  13. TOLOXIN                            /00017701/ [Concomitant]

REACTIONS (9)
  - Arthralgia [Not Recovered/Not Resolved]
  - Back pain [Not Recovered/Not Resolved]
  - Dizziness [Not Recovered/Not Resolved]
  - Feeling abnormal [Not Recovered/Not Resolved]
  - Gait disturbance [Not Recovered/Not Resolved]
  - Hyperhidrosis [Not Recovered/Not Resolved]
  - Micturition urgency [Not Recovered/Not Resolved]
  - Muscle spasms [Not Recovered/Not Resolved]
  - Respiratory disorder [Not Recovered/Not Resolved]
